FAERS Safety Report 24722180 (Version 1)
Quarter: 2024Q4

REPORT INFORMATION
  Report Type: Spontaneous
  Country: GB (occurrence: GB)
  Receive Date: 20241211
  Receipt Date: 20241211
  Transmission Date: 20250115
  Serious: Yes (Other)
  Sender: MYLAN
  Company Number: GB-MHRA-WEBRADR-202412061000495970-FPMVL

PATIENT

DRUGS (1)
  1. AMLODIPINE [Suspect]
     Active Substance: AMLODIPINE BESYLATE
     Indication: Product used for unknown indication
     Dosage: UNK
     Route: 065

REACTIONS (2)
  - Hyponatraemia [Recovering/Resolving]
  - Hypotension [Recovering/Resolving]
